FAERS Safety Report 6924149-4 (Version None)
Quarter: 2010Q3

REPORT INFORMATION
  Report Type: 
  Country: None (occurrence: None)
  Receive Date: 20100812
  Receipt Date: 20100812
  Transmission Date: 20110219
  Serious: Yes (Other)
  Sender: FDA-Public Use
  Company Number: None

PATIENT
  Age: 59 Year
  Sex: Male
  Weight: 75.2971 kg

DRUGS (1)
  1. ARICEPT [Suspect]
     Indication: MEMORY IMPAIRMENT
     Dosage: 1/DAY PO
     Route: 048
     Dates: start: 20100720, end: 20100805

REACTIONS (2)
  - DRUG EFFECT DECREASED [None]
  - MUSCLE SPASMS [None]
